FAERS Safety Report 9642583 (Version 2)
Quarter: 2013Q4

REPORT INFORMATION
  Report Type: Spontaneous
  Country: US (occurrence: US)
  Receive Date: 20131024
  Receipt Date: 20131031
  Transmission Date: 20140711
  Serious: No
  Sender: FDA-Public Use
  Company Number: US-PFIZER INC-2013302685

PATIENT
  Age: 57 Year
  Sex: Male
  Weight: 88.44 kg

DRUGS (10)
  1. LYRICA [Suspect]
     Indication: NEURALGIA
     Dosage: 200 MG, 2X/DAY
     Route: 048
     Dates: start: 2010, end: 20131015
  2. LYRICA [Suspect]
     Indication: SPINAL CORD INJURY
  3. XANAX [Concomitant]
     Indication: ANXIETY
     Dosage: UNK, AS NEEDED
  4. ZOLOFT [Concomitant]
     Dosage: UNK
  5. MARINOL [Concomitant]
     Dosage: UNK
  6. FENTANYL [Concomitant]
     Indication: PAIN
     Dosage: UNK
  7. WELLBUTRIN SR [Concomitant]
     Dosage: UNK
  8. PROPRANOLOL [Concomitant]
     Dosage: UNK
  9. HYDROCHLOROTHIAZIDE [Concomitant]
     Dosage: UNK
  10. NORCO [Concomitant]
     Indication: PAIN
     Dosage: UNK

REACTIONS (5)
  - Blood cholesterol increased [Unknown]
  - Drug withdrawal syndrome [Not Recovered/Not Resolved]
  - Pain [Not Recovered/Not Resolved]
  - Nausea [Not Recovered/Not Resolved]
  - Irritability [Not Recovered/Not Resolved]
